FAERS Safety Report 4787533-3 (Version None)
Quarter: 2005Q4

REPORT INFORMATION
  Report Type: 
  Country: None (occurrence: None)
  Receive Date: 20051003
  Receipt Date: 20050920
  Transmission Date: 20060501
  Serious: Yes (Death)
  Sender: FDA-Public Use
  Company Number: HQWYE588122SEP05

PATIENT
  Age: 62 Year
  Sex: Female

DRUGS (7)
  1. RAPAMUNE [Suspect]
     Indication: PROPHYLAXIS AGAINST TRANSPLANT REJECTION
     Dosage: 6 MG 1X PER 1 DAY ORAL
     Route: 048
  2. K-DUR 10 [Concomitant]
  3. VITAMIN B (TOCOPHEROL) [Concomitant]
  4. ASACOL [Concomitant]
  5. CELEXA [Concomitant]
  6. PRILOSEC [Concomitant]
  7. PREDNISONE [Concomitant]

REACTIONS (1)
  - MULTI-ORGAN FAILURE [None]
